FAERS Safety Report 7238104-0 (Version None)
Quarter: 2011Q1

REPORT INFORMATION
  Report Type: 
  Country: None (occurrence: None)
  Receive Date: 20110119
  Receipt Date: 20110119
  Transmission Date: 20110831
  Serious: No
  Sender: FDA-Public Use
  Company Number: None

PATIENT
  Age: 64 Year
  Sex: Female
  Weight: 106.1417 kg

DRUGS (1)
  1. ALCOHOL SWABS 70% ISOPROPOL ALCOHOL KROGER [Suspect]
     Indication: INJECTION
     Dosage: ONE DAILY
     Dates: start: 20101010, end: 20110101

REACTIONS (1)
  - RASH [None]
